FAERS Safety Report 24246572 (Version 1)
Quarter: 2024Q3

REPORT INFORMATION
  Report Type: Spontaneous
  Country: JP (occurrence: JP)
  Receive Date: 20240825
  Receipt Date: 20240825
  Transmission Date: 20241016
  Serious: Yes (Hospitalization)
  Sender: SOLA PHARMACEUTICALS
  Company Number: JP-SOLA PHARMACEUTICALS-20240800013

PATIENT

DRUGS (2)
  1. DIMETHYL FUMARATE [Suspect]
     Active Substance: DIMETHYL FUMARATE
     Indication: Multiple sclerosis
     Dosage: 480 MILLIGRAM, QD (PER DAY)
     Route: 065
  2. DIMETHYL FUMARATE [Suspect]
     Active Substance: DIMETHYL FUMARATE
     Dosage: 240 MILLIGRAM, QD (PER DAY)
     Route: 065

REACTIONS (2)
  - Threatened labour [Recovered/Resolved]
  - Exposure during pregnancy [Recovered/Resolved]
